FAERS Safety Report 10899773 (Version 2)
Quarter: 2015Q2

REPORT INFORMATION
  Report Type: Report from Study
  Country: BR (occurrence: BR)
  Receive Date: 20150310
  Receipt Date: 20150404
  Transmission Date: 20150821
  Serious: Yes (Death, Hospitalization, Other)
  Sender: FDA-Public Use
  Company Number: PHHY2015BR028090

PATIENT
  Age: 93 Year
  Sex: Female

DRUGS (12)
  1. DORILAX [Concomitant]
     Indication: PAIN
     Dosage: 1 DF, PRN (WHEN HAVE PAIN))
     Route: 048
  2. CILOSTAL [Concomitant]
     Active Substance: CILOSTAZOL
     Indication: ANTICOAGULANT THERAPY
     Dosage: 2 DF, QD
     Route: 048
  3. VASTAREL [Concomitant]
     Active Substance: TRIMETAZIDINE DIHYDROCHLORIDE
     Indication: ANTICOAGULANT THERAPY
     Dosage: 2 DF, QD
     Route: 048
  4. AAS [Concomitant]
     Active Substance: ASPIRIN
     Indication: ANTICOAGULANT THERAPY
     Dosage: 2 DF, QD
     Route: 048
  5. EXELON PATCH [Suspect]
     Active Substance: RIVASTIGMINE
     Indication: MEMORY IMPAIRMENT
  6. ATENOLOL. [Concomitant]
     Active Substance: ATENOLOL
     Indication: HYPERTENSION
     Dosage: 3 DF, QD
     Route: 048
  7. QUEROPAX [Concomitant]
     Active Substance: QUETIAPINE FUMARATE
     Indication: SLEEP DISORDER
     Dosage: 2 DF, QD
     Route: 048
  8. OMEPRAZOLE. [Suspect]
     Active Substance: OMEPRAZOLE
     Indication: PROPHYLAXIS
     Dosage: 1 TABLET, QD (20 MG)
     Route: 048
  9. VELIJA [Concomitant]
     Active Substance: DULOXETINE HYDROCHLORIDE
     Indication: ANTIDEPRESSANT THERAPY
     Dosage: 1 DF, QD
     Route: 048
  10. ADDERA D3 [Concomitant]
     Active Substance: CHOLECALCIFEROL
     Indication: VITAMIN SUPPLEMENTATION
     Dosage: 1 DF, WEEKLY (50 MG/ 5 MG)
     Route: 048
  11. EXELON PATCH [Suspect]
     Active Substance: RIVASTIGMINE
     Indication: CONFUSIONAL STATE
     Dosage: 1 ADHESIVE, QD (STARTED 8 MONTHS AGO)
     Route: 062
  12. MONOCORDIL [Concomitant]
     Active Substance: ISOSORBIDE MONONITRATE
     Indication: ANTICOAGULANT THERAPY
     Dosage: 2 DF, QD
     Route: 048

REACTIONS (5)
  - Loss of consciousness [Not Recovered/Not Resolved]
  - Product use issue [Unknown]
  - Cerebrovascular accident [Not Recovered/Not Resolved]
  - Drug ineffective [Unknown]
  - Infarction [Fatal]

NARRATIVE: CASE EVENT DATE: 20150304
